FAERS Safety Report 4365125-8 (Version None)
Quarter: 2004Q2

REPORT INFORMATION
  Report Type: 
  Country: None (occurrence: None)
  Receive Date: 20040521
  Receipt Date: 20040506
  Transmission Date: 20050107
  Serious: Yes (Hospitalization)
  Sender: FDA-Public Use
  Company Number: 200411723GDS

PATIENT
  Sex: Female

DRUGS (2)
  1. AVELOX [Suspect]
     Indication: SINUSITIS
     Dosage: 400 MG, TOTAL DAILY, ORAL
     Route: 048
     Dates: start: 20040501
  2. FLUOXETINE [Concomitant]

REACTIONS (13)
  - AGEUSIA [None]
  - ANOSMIA [None]
  - DIARRHOEA [None]
  - EYE OEDEMA [None]
  - FATIGUE [None]
  - HYPOAESTHESIA [None]
  - HYPOAESTHESIA ORAL [None]
  - LACRIMATION INCREASED [None]
  - NECK PAIN [None]
  - PAIN [None]
  - RASH [None]
  - SOMNOLENCE [None]
  - VOMITING [None]
